FAERS Safety Report 8589126 (Version 4)
Quarter: 2012Q4

REPORT INFORMATION
  Report Type: 
  Country: DE (occurrence: JP)
  Receive Date: 20120531
  Receipt Date: 20121025
  Transmission Date: 20130627
  Serious: Yes (Life-Threatening, Hospitalization)
  Sender: FDA-Public Use
  Company Number: JP-FRI-1000030751

PATIENT
  Age: 67 Year
  Sex: Male
  Weight: 41 kg

DRUGS (11)
  1. MEMANTINE [Suspect]
     Indication: DEMENTIA
     Dosage: 10 mg
     Route: 048
     Dates: start: 20120428, end: 20120509
  2. MEMANTINE [Suspect]
     Indication: DEMENTIA
     Dosage: 15 mg
     Route: 048
     Dates: start: 20120510, end: 20120513
  3. DONEPEZIL [Suspect]
     Indication: DEMENTIA
     Dosage: 5 mg
     Dates: start: 20120406, end: 20120509
  4. DONEPEZIL [Suspect]
     Dosage: 10 mg
     Dates: start: 20120510, end: 20120513
  5. ARICEPT [Suspect]
     Indication: DEMENTIA
     Dosage: 10 mg
     Dates: start: 20120514
  6. GRAMALIL [Concomitant]
     Indication: DEMENTIA
     Dosage: 75 mg
     Dates: start: 20120413
  7. URSO [Concomitant]
     Indication: CHRONIC HEPATITIS
     Dosage: 300 mg
     Dates: start: 20120113
  8. REBAMIPIDE [Concomitant]
     Indication: GASTRITIS
     Dates: start: 20120113
  9. NOCBIN [Concomitant]
     Indication: ALCOHOLISM
     Dosage: 0.2 g
     Dates: start: 20120113
  10. LANTUS [Concomitant]
     Indication: DIABETES MELLITUS
     Dosage: 4 IU
     Route: 058
     Dates: start: 20120421, end: 20120428
  11. GLIMICRON [Concomitant]
     Indication: DIABETES MELLITUS
     Dosage: 40 mg
     Route: 048
     Dates: start: 20120429, end: 20120512

REACTIONS (2)
  - Status epilepticus [Recovered/Resolved]
  - Depressed level of consciousness [None]
